FAERS Safety Report 13167362 (Version 1)
Quarter: 2017Q1

REPORT INFORMATION
  Report Type: Spontaneous
  Country: US (occurrence: US)
  Receive Date: 20170130
  Receipt Date: 20170130
  Transmission Date: 20170428
  Serious: Yes (Other)
  Sender: FDA-Public Use
  Company Number: None

PATIENT
  Age: 11 Year
  Sex: Female
  Weight: 37.35 kg

DRUGS (3)
  1. PULMOCORT [Concomitant]
  2. CLARITIN [Concomitant]
     Active Substance: LORATADINE
  3. MONTELUKAST [Suspect]
     Active Substance: MONTELUKAST SODIUM
     Indication: ASTHMA
     Dosage: ?          QUANTITY:1 TABLET(S);?
     Route: 048

REACTIONS (3)
  - Agitation [None]
  - Self-injurious ideation [None]
  - Depression [None]

NARRATIVE: CASE EVENT DATE: 20161031
